FAERS Safety Report 17375680 (Version 1)
Quarter: 2020Q1

REPORT INFORMATION
  Report Type: Spontaneous
  Country: CA (occurrence: CA)
  Receive Date: 20200206
  Receipt Date: 20200206
  Transmission Date: 20200409
  Serious: Yes (Death, Hospitalization, Other)
  Sender: FDA-Public Use
  Company Number: CA-LUPIN PHARMACEUTICALS INC.-2020-00499

PATIENT
  Age: 66 Year
  Sex: Female

DRUGS (5)
  1. MEROPENEM. [Concomitant]
     Active Substance: MEROPENEM
     Indication: BACTEROIDES BACTERAEMIA
     Dosage: UNK
     Route: 065
  2. DAPTOMYCIN. [Concomitant]
     Active Substance: DAPTOMYCIN
     Indication: BACTEROIDES BACTERAEMIA
     Dosage: UNK
     Route: 065
  3. METRONIDAZOLE. [Concomitant]
     Active Substance: METRONIDAZOLE
     Indication: BACTEROIDES BACTERAEMIA
     Dosage: UNK
     Route: 065
  4. DOXYCYCLINE. [Suspect]
     Active Substance: DOXYCYCLINE
     Indication: UREAPLASMA INFECTION
     Dosage: 100 MILLIGRAM, BID
     Route: 042
  5. SULFAMETHOXAZOLE AND TRIMETHOPRIM [Concomitant]
     Active Substance: SULFAMETHOXAZOLE\TRIMETHOPRIM
     Indication: BACTEROIDES BACTERAEMIA
     Dosage: UNK
     Route: 065

REACTIONS (3)
  - Treatment failure [Fatal]
  - Condition aggravated [Fatal]
  - Ureaplasma infection [Fatal]
